FAERS Safety Report 20967898 (Version 2)
Quarter: 2022Q2

REPORT INFORMATION
  Report Type: Report from Study
  Country: IT (occurrence: IT)
  Receive Date: 20220616
  Receipt Date: 20220623
  Transmission Date: 20220720
  Serious: Yes (Death)
  Sender: FDA-Public Use
  Company Number: IT-DSJP-DSU-2022-120853

PATIENT

DRUGS (2)
  1. ENHERTU [Suspect]
     Active Substance: FAM-TRASTUZUMAB DERUXTECAN-NXKI
     Indication: Breast cancer
     Dosage: 286 MG, ONCE EVERY 3 WK
     Route: 042
     Dates: start: 20220302, end: 20220302
  2. ENHERTU [Suspect]
     Active Substance: FAM-TRASTUZUMAB DERUXTECAN-NXKI
     Dosage: 286 MG, ONCE EVERY 3 WK
     Route: 042
     Dates: start: 20220323, end: 20220323

REACTIONS (1)
  - COVID-19 [Fatal]
